FAERS Safety Report 24799282 (Version 1)
Quarter: 2024Q4

REPORT INFORMATION
  Report Type: Spontaneous
  Country: US (occurrence: None)
  Receive Date: 20241231
  Receipt Date: 20241231
  Transmission Date: 20250115
  Serious: Yes (Hospitalization)
  Sender: Public
  Company Number: None

PATIENT
  Sex: Female

DRUGS (9)
  1. HUMIRA [Suspect]
     Active Substance: ADALIMUMAB
     Indication: Juvenile idiopathic arthritis
     Dosage: FREQ: INJECT 40 MG UNDER TEH SKIN (SUBCUTANEOUS INJECTION) EVERY 14 DAYS
     Route: 058
     Dates: start: 20230324
  2. CELEXA [Concomitant]
     Active Substance: CITALOPRAM HYDROBROMIDE
  3. CYPROHEPTADI [Concomitant]
  4. GABAPENTIN [Concomitant]
     Active Substance: GABAPENTIN
  5. KP VITAMIN D [Concomitant]
  6. LEUCOVOR CA [Concomitant]
  7. LINZESS [Concomitant]
     Active Substance: LINACLOTIDE
  8. METHOTREXATE [Concomitant]
     Active Substance: METHOTREXATE
  9. MULTIVITAMIN CHW CHILDREN [Concomitant]

REACTIONS (3)
  - Mental disorder [None]
  - Intentional dose omission [None]
  - Illness [None]
